FAERS Safety Report 8998011 (Version 1)
Quarter: 2013Q1

REPORT INFORMATION
  Report Type: Spontaneous
  Country: TW (occurrence: TW)
  Receive Date: 20130104
  Receipt Date: 20130104
  Transmission Date: 20140127
  Serious: Yes (Other)
  Sender: FDA-Public Use
  Company Number: TW-MYLANLABS-2012S1026321

PATIENT
  Age: 39 Year
  Sex: Female

DRUGS (1)
  1. RISPERIDONE [Suspect]
     Indication: SCHIZOPHRENIA
     Dosage: 2MG BID
     Route: 065

REACTIONS (2)
  - Mastitis [Recovered/Resolved]
  - Hyperprolactinaemia [Unknown]
